FAERS Safety Report 6114830-1 (Version None)
Quarter: 2009Q1

REPORT INFORMATION
  Report Type: 
  Country: None (occurrence: None)
  Receive Date: 20090313
  Receipt Date: 20090302
  Transmission Date: 20090719
  Serious: Yes (Death)
  Sender: FDA-Public Use
  Company Number: FR-PFIZER INC-2009180424

PATIENT

DRUGS (5)
  1. CHAMPIX [Suspect]
     Indication: SMOKING CESSATION THERAPY
  2. PLAVIX [Concomitant]
  3. ZESTORETIC [Concomitant]
  4. DETENSIEL [Concomitant]
  5. TAHOR [Concomitant]

REACTIONS (2)
  - CHEST PAIN [None]
  - DEATH [None]
